FAERS Safety Report 17227069 (Version 1)
Quarter: 2020Q1

REPORT INFORMATION
  Report Type: Spontaneous
  Country: SE (occurrence: SE)
  Receive Date: 20200103
  Receipt Date: 20200103
  Transmission Date: 20200409
  Serious: Yes (Hospitalization)
  Sender: FDA-Public Use
  Company Number: SE-TEVA-2019-SE-1160396

PATIENT
  Age: 29 Year
  Sex: Female

DRUGS (3)
  1. IMOVANE [Suspect]
     Active Substance: ZOPICLONE
     Dosage: 2X7.5 MG
     Dates: start: 20190109, end: 20190109
  2. STESOLID [Suspect]
     Active Substance: DIAZEPAM
     Dosage: 20X5 MG
     Route: 048
     Dates: start: 20190109, end: 20190109
  3. PROPAVAN [Suspect]
     Active Substance: PROPIOMAZINE
     Dosage: 10X25 MG
     Route: 048
     Dates: start: 20190109, end: 20190109

REACTIONS (2)
  - Intentional overdose [Unknown]
  - Intentional self-injury [Unknown]

NARRATIVE: CASE EVENT DATE: 20190109
